FAERS Safety Report 5260238-0 (Version None)
Quarter: 2007Q1

REPORT INFORMATION
  Report Type: 
  Country: None (occurrence: None)
  Receive Date: 20070309
  Receipt Date: 20060519
  Transmission Date: 20070707
  Serious: No
  Sender: FDA-Public Use
  Company Number: US-GLAXOSMITHKLINE-A0606130A

PATIENT

DRUGS (2)
  1. NICORETTE [Suspect]
  2. NICORETTE [Suspect]

REACTIONS (4)
  - CHOLINERGIC SYNDROME [None]
  - COUGH [None]
  - DYSPNOEA [None]
  - NICOTINE DEPENDENCE [None]
